FAERS Safety Report 6343295-X (Version None)
Quarter: 2009Q3

REPORT INFORMATION
  Report Type: 
  Country: None (occurrence: None)
  Receive Date: 20090908
  Receipt Date: 20090828
  Transmission Date: 20100115
  Serious: Yes (Hospitalization)
  Sender: FDA-Public Use
  Company Number: PHHY2009BR36516

PATIENT
  Age: 71 Year
  Sex: Male
  Weight: 42 kg

DRUGS (1)
  1. FORASEQ [Suspect]
     Indication: LUNG DISORDER
     Dosage: 1 DF, BID

REACTIONS (5)
  - CONCOMITANT DISEASE PROGRESSION [None]
  - INFECTION [None]
  - KIDNEY INFECTION [None]
  - LUNG DISORDER [None]
  - LUNG INFECTION [None]
